FAERS Safety Report 7571780-1 (Version None)
Quarter: 2011Q2

REPORT INFORMATION
  Report Type: 
  Country: None (occurrence: None)
  Receive Date: 20110624
  Receipt Date: 20110608
  Transmission Date: 20111010
  Serious: No
  Sender: FDA-Public Use
  Company Number: US-B.I. PHARMACEUTICALS,INC./RIDGEFIELD-2011-BP-12217BP

PATIENT
  Age: 66 Year
  Sex: Male

DRUGS (3)
  1. RYTHMOL SR [Concomitant]
     Dosage: 650 MG
     Dates: start: 20110418, end: 20110523
  2. PRADAXA [Suspect]
     Dosage: 150 MG
     Dates: start: 20110429, end: 20110523
  3. PRADAXA [Suspect]
     Indication: ATRIAL FIBRILLATION
     Dates: start: 20110411, end: 20110429

REACTIONS (2)
  - CARDIAC DISORDER [None]
  - INTERNATIONAL NORMALISED RATIO [None]
